FAERS Safety Report 18212915 (Version 1)
Quarter: 2020Q3

REPORT INFORMATION
  Report Type: Spontaneous
  Country: CN (occurrence: CN)
  Receive Date: 20200831
  Receipt Date: 20200831
  Transmission Date: 20201103
  Serious: Yes (Hospitalization)
  Sender: FDA-Public Use
  Company Number: CN-DRREDDYS-GPV/CHN/20/0126444

PATIENT
  Age: 43 Year
  Sex: Female
  Weight: 45 kg

DRUGS (4)
  1. CEFAZOXIME SODIUM FOR INJECTION [Concomitant]
     Indication: PNEUMONITIS
     Dosage: 20MG,TID
     Route: 041
     Dates: start: 20200723, end: 20200728
  2. OLANZAPINE. [Suspect]
     Active Substance: OLANZAPINE
     Dosage: 10MG QN
     Route: 048
     Dates: start: 20200815
  3. OLANZAPINE. [Suspect]
     Active Substance: OLANZAPINE
     Indication: SCHIZOPHRENIA
     Dosage: 5MG,BID
     Route: 048
     Dates: start: 20200713
  4. OLANZAPINE. [Suspect]
     Active Substance: OLANZAPINE
     Dosage: 10MG,BID
     Route: 048
     Dates: start: 20200718

REACTIONS (1)
  - Granulocytopenia [Recovering/Resolving]

NARRATIVE: CASE EVENT DATE: 20200727
